FAERS Safety Report 19458747 (Version 1)
Quarter: 2021Q2

REPORT INFORMATION
  Report Type: Spontaneous
  Country: ES (occurrence: ES)
  Receive Date: 20210624
  Receipt Date: 20210624
  Transmission Date: 20210717
  Serious: Yes (Other)
  Sender: FDA-Public Use
  Company Number: ES-US-PROVELL PHARMACEUTICALS LLC-E2B_90083941

PATIENT
  Age: 63 Year
  Sex: Female

DRUGS (6)
  1. IBUPROFENO KERN PHARMA [Concomitant]
     Active Substance: IBUPROFEN
     Indication: ABDOMINAL PAIN
     Route: 048
     Dates: start: 20210521, end: 20210525
  2. EUTIROX [Suspect]
     Active Substance: LEVOTHYROXINE SODIUM
     Indication: HYPOTHYROIDISM
     Route: 048
     Dates: start: 20170314, end: 20210603
  3. FLATORIL                           /00807201/ [Concomitant]
     Active Substance: CLEBOPRIDE MALATE\DIMETHICONE
     Indication: ABDOMINAL PAIN
     Route: 048
     Dates: start: 20210521
  4. SIMVASTATINA NORMON [Concomitant]
     Active Substance: SIMVASTATIN
     Indication: TYPE V HYPERLIPIDAEMIA
     Route: 048
     Dates: start: 20200928
  5. METAMIZOL NORMON [Concomitant]
     Active Substance: METAMIZOLE SODIUM
     Indication: ABDOMINAL PAIN
     Route: 048
     Dates: start: 20210521, end: 20210525
  6. GIBITER EASYHALER [Concomitant]
     Active Substance: BUDESONIDE\FORMOTEROL FUMARATE DIHYDRATE
     Indication: ASTHMA
     Dates: start: 20210521

REACTIONS (3)
  - Hypothyroidism [Not Recovered/Not Resolved]
  - Blood thyroid stimulating hormone increased [Not Recovered/Not Resolved]
  - Abdominal pain [Not Recovered/Not Resolved]

NARRATIVE: CASE EVENT DATE: 20210602
